FAERS Safety Report 4303658-0 (Version None)
Quarter: 2004Q1

REPORT INFORMATION
  Report Type: 
  Country: None (occurrence: None)
  Receive Date: 20040224
  Receipt Date: 20040224
  Transmission Date: 20041129
  Serious: Yes (Life-Threatening, Hospitalization)
  Sender: FDA-Public Use
  Company Number: None

PATIENT
  Age: 81 Year
  Sex: Female
  Weight: 58 kg

DRUGS (16)
  1. COUMADIN [Suspect]
     Indication: DEEP VEIN THROMBOSIS
     Dosage: 2.5 MG QD ORAL
     Route: 048
     Dates: start: 20031220, end: 20031230
  2. COUMADIN [Suspect]
     Indication: PULMONARY EMBOLISM
     Dosage: 2.5 MG QD ORAL
     Route: 048
     Dates: start: 20031220, end: 20031230
  3. LOVENOX [Suspect]
     Indication: DEEP VEIN THROMBOSIS
     Dosage: 60 MG BID SQ
     Route: 058
     Dates: start: 20031223, end: 20031230
  4. LOVENOX [Suspect]
     Indication: PULMONARY EMBOLISM
     Dosage: 60 MG BID SQ
     Route: 058
     Dates: start: 20031223, end: 20031230
  5. FLAGYL [Concomitant]
  6. ASPIRIN [Concomitant]
  7. PREVACID [Concomitant]
  8. FERROUS SULFATE TAB [Concomitant]
  9. LEXAPRO [Concomitant]
  10. NORVASC [Concomitant]
  11. PROCRIL [Concomitant]
  12. PRAVACHOL [Concomitant]
  13. PHENERGAN [Concomitant]
  14. REGLAN [Concomitant]
  15. POTASSIUM [Concomitant]
  16. FOLIC ACID [Concomitant]

REACTIONS (6)
  - ABDOMINAL PAIN LOWER [None]
  - ASTHENIA [None]
  - GRAFT COMPLICATION [None]
  - MASS [None]
  - RECTAL HAEMORRHAGE [None]
  - RETROPERITONEAL HAEMORRHAGE [None]
